FAERS Safety Report 6571924-4 (Version None)
Quarter: 2010Q1

REPORT INFORMATION
  Report Type: 
  Country: None (occurrence: None)
  Receive Date: 20100205
  Receipt Date: 20100126
  Transmission Date: 20100710
  Serious: Yes (Life-Threatening, Other)
  Sender: FDA-Public Use
  Company Number: BR-ROCHE-681848

PATIENT
  Age: 32 Year
  Sex: Female
  Weight: 65 kg

DRUGS (2)
  1. VESANOID [Suspect]
     Route: 048
     Dates: start: 20100123
  2. DEXAMETHASONE [Concomitant]

REACTIONS (2)
  - COAGULOPATHY [None]
  - RESPIRATORY FAILURE [None]
